FAERS Safety Report 7518968-3 (Version None)
Quarter: 2011Q2

REPORT INFORMATION
  Report Type: 
  Country: None (occurrence: None)
  Receive Date: 20110512
  Receipt Date: 20110404
  Transmission Date: 20111010
  Serious: No
  Sender: FDA-Public Use
  Company Number: 1000019808

PATIENT
  Age: 65 Year
  Sex: Female

DRUGS (5)
  1. SAVELLA [Suspect]
     Indication: PAIN
     Dosage: 100MG (50 MG, 2 IN 1 D), ORAL 50 MG (25 MG, 2 IN 1 D), ORAL
     Route: 048
     Dates: start: 20110321
  2. SAVELLA [Suspect]
     Indication: PAIN
     Dosage: 100MG (50 MG, 2 IN 1 D), ORAL 50 MG (25 MG, 2 IN 1 D), ORAL
     Route: 048
     Dates: start: 20110201, end: 20110320
  3. METOPROLOL SUCCINATE [Concomitant]
  4. LIPITOR [Concomitant]
  5. SAVELLA [Suspect]
     Indication: PAIN
     Dosage: 12.5MG (12.5 MG, 1 IN 1 D), ORAL 25MG (12.5 MG, 2 IN 1 D), ORAL 50 MG (25 MG, 2 IN 1 D), ORAL
     Route: 048
     Dates: start: 20110201, end: 20110201

REACTIONS (1)
  - NAUSEA [None]
